FAERS Safety Report 5742191-6 (Version None)
Quarter: 2008Q2

REPORT INFORMATION
  Report Type: 
  Country: None (occurrence: None)
  Receive Date: 20080514
  Receipt Date: 20080514
  Transmission Date: 20081010
  Serious: Yes (Other)
  Sender: FDA-Public Use
  Company Number: None

PATIENT
  Age: 80 Year
  Sex: Female

DRUGS (1)
  1. DIGITEK 0.25MG AMIDE-BERTEK- [Suspect]
     Dosage: 0.25MG DAILY PO
     Route: 048
     Dates: start: 20080304, end: 20080509

REACTIONS (4)
  - DIZZINESS [None]
  - FALL [None]
  - RIB FRACTURE [None]
  - VOMITING [None]
